FAERS Safety Report 15330431 (Version 1)
Quarter: 2018Q3

REPORT INFORMATION
  Report Type: Spontaneous
  Country: BR (occurrence: BR)
  Receive Date: 20180829
  Receipt Date: 20180829
  Transmission Date: 20181010
  Serious: Yes (Hospitalization)
  Sender: FDA-Public Use
  Company Number: BR-BAYER-2018-160256

PATIENT
  Age: 43 Year
  Sex: Female

DRUGS (2)
  1. MIRENA [Suspect]
     Active Substance: LEVONORGESTREL
     Indication: AMENORRHOEA
     Dosage: 20 MCG/24HR, CONT
     Route: 015
     Dates: start: 20130321
  2. VENLAFAXINE HYDROCHLORIDE. [Concomitant]
     Active Substance: VENLAFAXINE HYDROCHLORIDE
     Indication: DEPRESSION
     Dosage: 150 MG, QD
     Route: 048
     Dates: start: 201801

REACTIONS (5)
  - Device use issue [None]
  - Vaginal haemorrhage [Not Recovered/Not Resolved]
  - Off label use of device [None]
  - Depression suicidal [Recovered/Resolved]
  - Depression suicidal [Recovered/Resolved]

NARRATIVE: CASE EVENT DATE: 20171116
